FAERS Safety Report 9957656 (Version 1)
Quarter: 2014Q1

REPORT INFORMATION
  Report Type: Report from Study
  Country: US (occurrence: US)
  Receive Date: 20140304
  Receipt Date: 20140304
  Transmission Date: 20141002
  Serious: No
  Sender: FDA-Public Use
  Company Number: US-ABBVIE-13P-163-1093578-00

PATIENT
  Age: 52 Year
  Sex: Female

DRUGS (6)
  1. HUMIRA [Suspect]
     Indication: COLITIS ULCERATIVE
     Dates: start: 20130412
  2. ATENOLOL [Concomitant]
     Indication: BLOOD PRESSURE ABNORMAL
     Dosage: 50MG DAILY
  3. ASACOL [Concomitant]
     Indication: COLITIS ULCERATIVE
     Dosage: 6 IN AM AND 6 IN PM
  4. ACID REFLUX MEDICATION [Concomitant]
     Indication: COLITIS ULCERATIVE
  5. ALBUTEROL [Concomitant]
     Indication: ASTHMA
  6. PROVENTIL [Concomitant]
     Indication: ASTHMA

REACTIONS (1)
  - Lupus-like syndrome [Not Recovered/Not Resolved]
